FAERS Safety Report 19171006 (Version 2)
Quarter: 2021Q2

REPORT INFORMATION
  Report Type: Spontaneous
  Country: US (occurrence: US)
  Receive Date: 20210422
  Receipt Date: 20210603
  Transmission Date: 20210717
  Serious: No
  Sender: FDA-Public Use
  Company Number: US-ASTRAZENECA-2021A208755

PATIENT
  Age: 31138 Day
  Sex: Female
  Weight: 73.9 kg

DRUGS (3)
  1. NOVOLOG [Concomitant]
     Active Substance: INSULIN ASPART
     Indication: DIABETES MELLITUS
     Dosage: 6
     Route: 058
     Dates: start: 201008
  2. LANTUS [Concomitant]
     Active Substance: INSULIN GLARGINE
     Indication: DIABETES MELLITUS
     Dosage: 18
     Route: 058
     Dates: start: 201008
  3. BYDUREON BCISE [Suspect]
     Active Substance: EXENATIDE
     Indication: DIABETES MELLITUS
     Route: 058
     Dates: start: 202007

REACTIONS (6)
  - Glycosylated haemoglobin abnormal [Unknown]
  - Confusional state [Unknown]
  - Constipation [Recovered/Resolved]
  - Product dose omission issue [Unknown]
  - Ill-defined disorder [Unknown]
  - Weight decreased [Unknown]

NARRATIVE: CASE EVENT DATE: 202009
